FAERS Safety Report 10051401 (Version 3)
Quarter: 2014Q2

REPORT INFORMATION
  Report Type: Spontaneous
  Country: US (occurrence: US)
  Receive Date: 20140401
  Receipt Date: 20140630
  Transmission Date: 20141212
  Serious: Yes (Other)
  Sender: FDA-Public Use
  Company Number: US-PFIZER INC-2014090747

PATIENT
  Age: 26 Year
  Sex: Male

DRUGS (20)
  1. EFFEXOR XR [Suspect]
     Indication: MAJOR DEPRESSION
     Dosage: UNK
     Route: 048
     Dates: start: 2003
  2. EFFEXOR XR [Suspect]
     Dosage: 225 MG, 1X/DAY
     Dates: start: 200401
  3. EFFEXOR XR [Suspect]
     Dosage: 75 MG CAPSULE
  4. EFFEXOR XR [Suspect]
     Dosage: 75 MG CAPSULE
  5. EFFEXOR XR [Suspect]
     Dosage: 75 MG CAPSULE
  6. EFFEXOR XR [Suspect]
     Dosage: 75 MG CAPSULE
  7. EFFEXOR XR [Suspect]
     Dosage: 75 MG CAPSULE
  8. EFFEXOR XR [Suspect]
     Dosage: 75 MG CAPSULE
  9. EFFEXOR XR [Suspect]
     Dosage: 75 MG CAPSULE
  10. EFFEXOR XR [Suspect]
     Dosage: 75 MG CAPSULE
  11. EFFEXOR XR [Suspect]
     Dosage: 75 MG CAPSULE
  12. EFFEXOR XR [Suspect]
     Dosage: 75 MG CAPSULE
  13. EFFEXOR XR [Suspect]
     Dosage: 75 MG CAPSULE
  14. EFFEXOR XR [Suspect]
     Dosage: 75 MG CAPSULE
  15. EFFEXOR XR [Suspect]
     Dosage: 75 MG CAPSULE
  16. EFFEXOR XR [Suspect]
     Dosage: 225 MG (3 DOSES OF 75MG), 1X/DAY IN AM
     Route: 048
     Dates: start: 2005
  17. EFFEXOR XR [Suspect]
     Dosage: 37.5 MG, 1X/DAY
     Route: 048
     Dates: start: 2013
  18. VITAMIN E [Concomitant]
     Dosage: 400 IU, UNK
  19. VITAMIN C [Concomitant]
     Dosage: 500 MG, DAILY
  20. MULTIVITAMINS [Concomitant]
     Dosage: UNK

REACTIONS (5)
  - Autoimmune hepatitis [Unknown]
  - Hepatic enzyme increased [Unknown]
  - Tinea versicolour [Recovered/Resolved]
  - Hyperhidrosis [Recovered/Resolved]
  - Malaise [Unknown]
